FAERS Safety Report 21795205 (Version 2)
Quarter: 2023Q1

REPORT INFORMATION
  Report Type: Report from Study
  Country: US (occurrence: US)
  Receive Date: 20221229
  Receipt Date: 20230103
  Transmission Date: 20230418
  Serious: No
  Sender: FDA-Public Use
  Company Number: US-ABBVIE-4252769

PATIENT
  Age: 31 Year
  Sex: Female

DRUGS (1)
  1. HUMIRA [Suspect]
     Active Substance: ADALIMUMAB
     Indication: Hidradenitis
     Dosage: FORM STRENGTH: 40 MILLIGRAM?CITRATE FREE
     Route: 058

REACTIONS (7)
  - Pulmonary mass [Unknown]
  - Road traffic accident [Unknown]
  - Bronchitis [Unknown]
  - Illness [Unknown]
  - Pneumonia [Unknown]
  - Contusion [Unknown]
  - Thunderclap headache [Unknown]

NARRATIVE: CASE EVENT DATE: 20221001
